FAERS Safety Report 4544087-4 (Version None)
Quarter: 2005Q1

REPORT INFORMATION
  Report Type: 
  Country: None (occurrence: None)
  Receive Date: 20050103
  Receipt Date: 20031201
  Transmission Date: 20050727
  Serious: Yes (Hospitalization)
  Sender: FDA-Public Use
  Company Number: GXKR2003GB00468

PATIENT
  Age: 53 Year
  Sex: Male

DRUGS (3)
  1. VERAPAMIL [Suspect]
     Indication: VENTRICULAR ARRHYTHMIA
     Dosage: 120 MG, TID, ORAL
     Route: 048
  2. THYROXINE (LEVOTHYROXINE SODIUM) [Concomitant]
  3. ANTICHOLINERGIC AGENTS (NO INGREDIENTS/SUBSTANCES) [Concomitant]

REACTIONS (11)
  - ATRIAL FIBRILLATION [None]
  - CARDIAC FAILURE [None]
  - CONDITION AGGRAVATED [None]
  - DIPLOPIA [None]
  - DYSARTHRIA [None]
  - DYSPHAGIA [None]
  - EMOTIONAL DISTRESS [None]
  - MOBILITY DECREASED [None]
  - MUSCULAR WEAKNESS [None]
  - MYASTHENIA GRAVIS [None]
  - SPEECH DISORDER [None]
